FAERS Safety Report 9154165 (Version 1)
Quarter: 2013Q1

REPORT INFORMATION
  Report Type: Spontaneous
  Country: US (occurrence: None)
  Receive Date: 20130306
  Receipt Date: 20130306
  Transmission Date: 20140127
  Serious: Yes (Other)
  Sender: FDA-Public Use
  Company Number: None

PATIENT
  Sex: Male
  Weight: 95.26 kg

DRUGS (1)
  1. CIALIS [Suspect]
     Indication: ERECTILE DYSFUNCTION
     Dosage: 2.5 MG DAILY PO
     Route: 048
     Dates: start: 20130102, end: 20130103

REACTIONS (4)
  - Rash [None]
  - Urticaria [None]
  - Skin discolouration [None]
  - Drug hypersensitivity [None]
